FAERS Safety Report 17197408 (Version 2)
Quarter: 2020Q1

REPORT INFORMATION
  Report Type: Spontaneous
  Country: GE (occurrence: GE)
  Receive Date: 20191224
  Receipt Date: 20200214
  Transmission Date: 20200409
  Serious: Yes (Hospitalization, Other)
  Sender: FDA-Public Use
  Company Number: GE-JNJFOC-20191039739

PATIENT
  Age: 68 Year
  Sex: Male

DRUGS (9)
  1. RIVAROXABAN [Suspect]
     Active Substance: RIVAROXABAN
     Indication: ATRIAL FIBRILLATION
     Dosage: 20 MG, UNK
     Route: 048
     Dates: start: 2018, end: 201910
  2. ADIPRIL [Concomitant]
     Dosage: UNK
  3. RIVAROXABAN [Suspect]
     Active Substance: RIVAROXABAN
     Dosage: UNK
     Route: 048
     Dates: start: 202001
  4. TORAGAMMA [Concomitant]
     Dosage: UNK
  5. BETALOC ZOK [Concomitant]
     Active Substance: METOPROLOL SUCCINATE
     Indication: PULSE ABNORMAL
     Dosage: 25 MG, UNK
     Dates: start: 201910
  6. VEROSPIRON [Concomitant]
     Active Substance: SPIRONOLACTONE
     Dosage: 25 MG, QD
     Dates: start: 201910
  7. AMLODIPINE [Concomitant]
     Active Substance: AMLODIPINE BESYLATE
     Dosage: 5/5 ONCE A DAY
     Dates: start: 201910
  8. FUROSEMIDE. [Concomitant]
     Active Substance: FUROSEMIDE
     Dosage: 40 MG, EVERY FOURTH DAY
     Dates: start: 201910
  9. EPLERENONE. [Concomitant]
     Active Substance: EPLERENONE
     Dosage: UNK

REACTIONS (4)
  - Epistaxis [Recovering/Resolving]
  - Bladder cancer [Recovering/Resolving]
  - Haematuria [Not Recovered/Not Resolved]
  - Pulse abnormal [Unknown]

NARRATIVE: CASE EVENT DATE: 201910
